FAERS Safety Report 16105208 (Version 6)
Quarter: 2019Q3

REPORT INFORMATION
  Report Type: Spontaneous
  Country: US (occurrence: US)
  Receive Date: 20190322
  Receipt Date: 20190923
  Transmission Date: 20191004
  Serious: Yes (Congenital Anomaly, Other)
  Sender: FDA-Public Use
  Company Number: PHEH2019US012566

PATIENT
  Sex: Female

DRUGS (3)
  1. ZOFRAN [Suspect]
     Active Substance: ONDANSETRON HYDROCHLORIDE
     Indication: FOETAL EXPOSURE DURING PREGNANCY
     Dosage: UNK
     Route: 064
  2. ONDANSETRON [Suspect]
     Active Substance: ONDANSETRON
     Indication: FOETAL EXPOSURE DURING PREGNANCY
     Dosage: MOTHER DOSE: 08 MG, Q8H
     Route: 064
  3. ZOFRAN [Suspect]
     Active Substance: ONDANSETRON HYDROCHLORIDE
     Indication: FOETAL EXPOSURE DURING PREGNANCY
     Dosage: MOTHER DOSE: 08 MG
     Route: 064

REACTIONS (21)
  - Emotional distress [Unknown]
  - Injury [Not Recovered/Not Resolved]
  - Pneumonia [Unknown]
  - Croup infectious [Unknown]
  - Constipation [Unknown]
  - Pyrexia [Unknown]
  - Otitis media chronic [Unknown]
  - Pain [Unknown]
  - Decreased appetite [Unknown]
  - Bronchiolitis [Unknown]
  - Urinary tract infection [Unknown]
  - Cleft palate [Unknown]
  - Deafness [Unknown]
  - Upper respiratory tract infection [Unknown]
  - Viral infection [Unknown]
  - Head injury [Unknown]
  - Foetal exposure during pregnancy [Unknown]
  - Eustachian tube dysfunction [Unknown]
  - Influenza [Unknown]
  - Deformity [Unknown]
  - Anhedonia [Unknown]
